FAERS Safety Report 22161380 (Version 2)
Quarter: 2023Q2

REPORT INFORMATION
  Report Type: Report from Study
  Country: IT (occurrence: IT)
  Receive Date: 20230331
  Receipt Date: 20230407
  Transmission Date: 20230721
  Serious: Yes (Life-Threatening)
  Sender: FDA-Public Use
  Company Number: IT-PFIZER INC-PV202300058914

PATIENT
  Age: 49 Year
  Sex: Male
  Weight: 69 kg

DRUGS (2)
  1. AXITINIB [Suspect]
     Active Substance: AXITINIB
     Indication: Metastatic renal cell carcinoma
     Dosage: 5 MG
     Route: 048
     Dates: start: 20210129, end: 20230326
  2. AVELUMAB [Suspect]
     Active Substance: AVELUMAB
     Indication: Metastatic renal cell carcinoma
     Dosage: 800 MG
     Route: 042
     Dates: start: 20210201, end: 20230313

REACTIONS (2)
  - Pulmonary embolism [Not Recovered/Not Resolved]
  - Acute kidney injury [Not Recovered/Not Resolved]

NARRATIVE: CASE EVENT DATE: 20230327
